FAERS Safety Report 17652344 (Version 1)
Quarter: 2020Q2

REPORT INFORMATION
  Report Type: Spontaneous
  Country: US (occurrence: US)
  Receive Date: 20200409
  Receipt Date: 20200409
  Transmission Date: 20200713
  Serious: No
  Sender: FDA-Public Use
  Company Number: NVSC2020US096072

PATIENT

DRUGS (2)
  1. CARBOPLATIN. [Suspect]
     Active Substance: CARBOPLATIN
     Indication: BRAIN NEOPLASM
     Dosage: 98 ML/MIN, CYCLIC (/1.73M2) (FIRST DOSE)
     Route: 065
  2. CARBOPLATIN. [Suspect]
     Active Substance: CARBOPLATIN
     Dosage: 121 ML/MIN, CYCLIC (/1.73M2) (SECOND DOSE)
     Route: 065

REACTIONS (2)
  - Nephropathy toxic [Unknown]
  - Glomerular filtration rate decreased [Unknown]
